FAERS Safety Report 16873660 (Version 4)
Quarter: 2019Q4

REPORT INFORMATION
  Report Type: Spontaneous
  Country: PL (occurrence: PL)
  Receive Date: 20191001
  Receipt Date: 20191220
  Transmission Date: 20200122
  Serious: Yes (Death, Life-Threatening, Other)
  Sender: FDA-Public Use
  Company Number: PL-MYLANLABS-2019M1091235

PATIENT
  Age: 30 Year
  Sex: Female

DRUGS (19)
  1. MONTELUKAST                        /01362602/ [Suspect]
     Active Substance: MONTELUKAST SODIUM
     Indication: GRAFT VERSUS HOST DISEASE
     Dosage: UNK
     Route: 048
  2. MONTELUKAST                        /01362602/ [Suspect]
     Active Substance: MONTELUKAST SODIUM
     Indication: OBLITERATIVE BRONCHIOLITIS
     Dosage: UNK
  3. FLUCONAZOLE. [Concomitant]
     Active Substance: FLUCONAZOLE
     Indication: OBLITERATIVE BRONCHIOLITIS
     Dosage: UNK
  4. CLADRIBINE. [Concomitant]
     Active Substance: CLADRIBINE
     Dosage: UNK
  5. METHYLPREDNISOLONE. [Suspect]
     Active Substance: METHYLPREDNISOLONE
     Indication: GRAFT VERSUS HOST DISEASE
     Dosage: 2 MILLIGRAM/KILOGRAM
     Route: 065
  6. BUSULFAN. [Concomitant]
     Active Substance: BUSULFAN
     Dosage: UNK
  7. CYCLOPHOSPHAMIDE. [Concomitant]
     Active Substance: CYCLOPHOSPHAMIDE
     Dosage: UNK
  8. AZITHROMYCIN ANHYDROUS. [Suspect]
     Active Substance: AZITHROMYCIN ANHYDROUS
     Indication: OBLITERATIVE BRONCHIOLITIS
     Dosage: UNK
  9. VORICONAZOLE. [Concomitant]
     Active Substance: VORICONAZOLE
     Dosage: UNK
  10. AZACITIDINE. [Concomitant]
     Active Substance: AZACITIDINE
     Dosage: UNK
  11. DAUNORUBICIN [Concomitant]
     Active Substance: DAUNORUBICIN
     Dosage: UNK
  12. FLUDARABINE PHOSPHATE. [Concomitant]
     Active Substance: FLUDARABINE PHOSPHATE
     Dosage: UNK
  13. MITOXANTRONE                       /00661302/ [Concomitant]
     Active Substance: MITOXANTRONE HYDROCHLORIDE
     Dosage: UNK
  14. FLUTICASONE. [Concomitant]
     Active Substance: FLUTICASONE
     Indication: OBLITERATIVE BRONCHIOLITIS
     Dosage: UNK
  15. TREOSULFAN [Concomitant]
     Active Substance: TREOSULFAN
     Dosage: UNK
  16. POSACONAZOLE [Concomitant]
     Active Substance: POSACONAZOLE
     Dosage: UNK
  17. CYTARABINE. [Concomitant]
     Active Substance: CYTARABINE
     Dosage: UNK
  18. AMPHOTERICINUM B [Concomitant]
     Active Substance: AMPHOTERICIN B
     Dosage: UNK
  19. TACROLIMUS. [Concomitant]
     Active Substance: TACROLIMUS
     Dosage: UNK

REACTIONS (9)
  - Disease progression [Fatal]
  - Drug ineffective [Fatal]
  - Graft versus host disease in gastrointestinal tract [Fatal]
  - Device related infection [Fatal]
  - Stenotrophomonas infection [Unknown]
  - Graft versus host disease in lung [Unknown]
  - Bronchopulmonary aspergillosis [Unknown]
  - Product use in unapproved indication [Unknown]
  - Bone neoplasm [Unknown]
